FAERS Safety Report 10309933 (Version 1)
Quarter: 2014Q3

REPORT INFORMATION
  Report Type: Spontaneous
  Country: US (occurrence: None)
  Receive Date: 20140715
  Receipt Date: 20140715
  Transmission Date: 20150326
  Serious: Yes (Hospitalization)
  Sender: FDA-Public Use
  Company Number: None

PATIENT
  Age: 67 Year
  Sex: Male
  Weight: 92.99 kg

DRUGS (3)
  1. XARELTO [Suspect]
     Active Substance: RIVAROXABAN
     Indication: ATRIAL FIBRILLATION
     Dosage: 1 PILL
     Route: 048
     Dates: start: 20130808, end: 20130917
  2. XARELTO [Suspect]
     Active Substance: RIVAROXABAN
     Indication: ATRIAL FLUTTER
     Dosage: 1 PILL
     Route: 048
     Dates: start: 20130808, end: 20130917
  3. XARELTO [Suspect]
     Active Substance: RIVAROXABAN
     Indication: JOINT SURGERY
     Dosage: 1 PILL
     Route: 048
     Dates: start: 20130808, end: 20130917

REACTIONS (3)
  - Dyspnoea [None]
  - Deep vein thrombosis [None]
  - Gait disturbance [None]

NARRATIVE: CASE EVENT DATE: 20130918
